FAERS Safety Report 7459350-7 (Version None)
Quarter: 2011Q2

REPORT INFORMATION
  Report Type: 
  Country: None (occurrence: None)
  Receive Date: 20110505
  Receipt Date: 20110420
  Transmission Date: 20111010
  Serious: Yes (Death)
  Sender: FDA-Public Use
  Company Number: FR-CELGENEUS-056-50794-11031651

PATIENT

DRUGS (1)
  1. VIDAZA [Suspect]
     Route: 050

REACTIONS (2)
  - DRUG INEFFECTIVE [None]
  - DEATH [None]
